FAERS Safety Report 12084429 (Version 1)
Quarter: 2016Q1

REPORT INFORMATION
  Report Type: Spontaneous
  Country: US (occurrence: None)
  Receive Date: 20160216
  Receipt Date: 20160216
  Transmission Date: 20160526
  Serious: Yes (Other)
  Sender: FDA-Public Use
  Company Number: None

PATIENT
  Age: 15 Year
  Sex: Male
  Weight: 68.04 kg

DRUGS (1)
  1. ZENATANE [Suspect]
     Active Substance: ISOTRETINOIN
     Indication: ACNE CYSTIC
     Dosage: 1 PILL BID ORAL
     Route: 048
     Dates: start: 20151021, end: 20160211

REACTIONS (2)
  - Social avoidant behaviour [None]
  - Suicidal ideation [None]

NARRATIVE: CASE EVENT DATE: 20160211
